FAERS Safety Report 5757066-6 (Version None)
Quarter: 2008Q2

REPORT INFORMATION
  Report Type: 
  Country: None (occurrence: None)
  Receive Date: 20080603
  Receipt Date: 20080521
  Transmission Date: 20081010
  Serious: Yes (Life-Threatening, Hospitalization)
  Sender: FDA-Public Use
  Company Number: B0521846A

PATIENT
  Age: 20 Year
  Sex: Male

DRUGS (3)
  1. ZYBAN [Suspect]
     Indication: INTENTIONAL OVERDOSE
     Dosage: 20TAB SINGLE DOSE
     Route: 048
     Dates: start: 20080411, end: 20080411
  2. SEVREDOL [Suspect]
     Indication: INTENTIONAL OVERDOSE
     Dosage: 28TAB SINGLE DOSE
     Route: 048
     Dates: start: 20080411, end: 20080411
  3. LEXOMIL [Suspect]
     Indication: INTENTIONAL OVERDOSE
     Dosage: 16TAB SINGLE DOSE
     Route: 048
     Dates: start: 20080411, end: 20080411

REACTIONS (21)
  - BODY TEMPERATURE DECREASED [None]
  - CARDIAC FAILURE [None]
  - CEREBRAL ISCHAEMIA [None]
  - COMA [None]
  - CONVULSION [None]
  - CYTOLYTIC HEPATITIS [None]
  - DILATATION VENTRICULAR [None]
  - DRUG TOXICITY [None]
  - HAEMODYNAMIC INSTABILITY [None]
  - HEART SOUNDS ABNORMAL [None]
  - HYPOTENSION [None]
  - INTENTIONAL OVERDOSE [None]
  - LEFT VENTRICULAR DYSFUNCTION [None]
  - MIOSIS [None]
  - MOTOR DYSFUNCTION [None]
  - PERIPHERAL COLDNESS [None]
  - RENAL FAILURE ACUTE [None]
  - RHABDOMYOLYSIS [None]
  - RIGHT ATRIAL DILATATION [None]
  - SINUS TACHYCARDIA [None]
  - TRICUSPID VALVE INCOMPETENCE [None]
